FAERS Safety Report 15707644 (Version 1)
Quarter: 2018Q4

REPORT INFORMATION
  Report Type: Spontaneous
  Country: PL (occurrence: PL)
  Receive Date: 20181211
  Receipt Date: 20181211
  Transmission Date: 20190205
  Serious: Yes (Other)
  Sender: FDA-Public Use
  Company Number: PL-009507513-1812POL002818

PATIENT
  Age: 56 Year
  Sex: Male
  Weight: 110 kg

DRUGS (4)
  1. KEYTRUDA [Suspect]
     Active Substance: PEMBROLIZUMAB
     Indication: MALIGNANT MELANOMA
     Dosage: 200 MG, EVERY 3 WEEKS
     Route: 042
     Dates: start: 20171109
  2. KALIPOZ [Concomitant]
     Active Substance: POTASSIUM CHLORIDE
     Dosage: UNK
     Route: 048
  3. HEMOFER (FERROUS CHLORIDE) [Concomitant]
     Dosage: UNK
     Route: 048
  4. NEOPARIN [Concomitant]
     Dosage: 0.04 (UNITS UNKNOWN)
     Route: 048

REACTIONS (2)
  - Malignant neoplasm progression [Unknown]
  - Lymphocytic leukaemia [Not Recovered/Not Resolved]

NARRATIVE: CASE EVENT DATE: 20181023
